FAERS Safety Report 15639308 (Version 5)
Quarter: 2019Q4

REPORT INFORMATION
  Report Type: Spontaneous
  Country: NO (occurrence: NO)
  Receive Date: 20181120
  Receipt Date: 20191108
  Transmission Date: 20200122
  Serious: Yes (Death, Life-Threatening, Hospitalization, Other)
  Sender: FDA-Public Use
  Company Number: NO-009507513-1811NOR007151

PATIENT
  Age: 71 Year
  Sex: Female
  Weight: 73 kg

DRUGS (5)
  1. KEYTRUDA [Suspect]
     Active Substance: PEMBROLIZUMAB
     Dosage: 150 MILLIGRAM, Q3W
     Route: 042
     Dates: end: 20181003
  2. ZESTORETIC [Concomitant]
     Active Substance: HYDROCHLOROTHIAZIDE\LISINOPRIL
     Indication: HYPERTENSION
     Dosage: 20/ 12.5 MG, QD
     Route: 048
  3. KEYTRUDA [Suspect]
     Active Substance: PEMBROLIZUMAB
     Indication: MALIGNANT MELANOMA STAGE IV
     Dosage: 150 MILLIGRAM, Q3W
     Route: 042
     Dates: start: 20180124, end: 20180912
  4. CALCIGRAN FORTE [Concomitant]
     Active Substance: CALCIUM CARBONATE\CHOLECALCIFEROL
     Dosage: DAILY DOSE/DOSE: 1000MG/800E
     Route: 048
  5. COLCHICINE. [Concomitant]
     Active Substance: COLCHICINE
     Dosage: 0.5 MILLIGRAM, TID
     Route: 048

REACTIONS (17)
  - Pneumonitis [Unknown]
  - General physical health deterioration [Unknown]
  - Arthralgia [Unknown]
  - Hepatotoxicity [Not Recovered/Not Resolved]
  - Hepatitis [Fatal]
  - Rash [Unknown]
  - Drug-induced liver injury [Fatal]
  - Diabetes mellitus [Unknown]
  - Hyperglycaemia [Unknown]
  - Pancreatitis [Fatal]
  - Jaundice [Unknown]
  - Nephritis [Unknown]
  - Dermatitis [Recovered/Resolved]
  - Thrombocytopenia [Unknown]
  - Hypothyroidism [Unknown]
  - Arthritis [Recovered/Resolved]
  - Cough [Unknown]

NARRATIVE: CASE EVENT DATE: 2018
